FAERS Safety Report 9381308 (Version 1)
Quarter: 2013Q3

REPORT INFORMATION
  Report Type: Report from Study
  Country: CA (occurrence: CA)
  Receive Date: 20130703
  Receipt Date: 20130703
  Transmission Date: 20140515
  Serious: Yes (Hospitalization)
  Sender: FDA-Public Use
  Company Number: CA-JNJFOC-20130614391

PATIENT
  Age: 37 Year
  Sex: Male
  Weight: 85 kg

DRUGS (3)
  1. REMICADE [Suspect]
     Indication: RHEUMATOID ARTHRITIS
     Route: 042
  2. OXYCONTIN [Concomitant]
     Route: 048
  3. B 12 [Concomitant]
     Route: 065

REACTIONS (1)
  - Spinal cord drainage [Unknown]
